FAERS Safety Report 7070539-1 (Version None)
Quarter: 2010Q4

REPORT INFORMATION
  Report Type: 
  Country: None (occurrence: None)
  Receive Date: 20101027
  Receipt Date: 20101027
  Transmission Date: 20110411
  Serious: No
  Sender: FDA-Public Use
  Company Number: None

PATIENT
  Sex: Female
  Weight: 77.1115 kg

DRUGS (1)
  1. MIRENA [Suspect]

REACTIONS (8)
  - ALOPECIA [None]
  - BACK PAIN [None]
  - DIZZINESS [None]
  - FATIGUE [None]
  - IRRITABLE BOWEL SYNDROME [None]
  - MENSTRUATION IRREGULAR [None]
  - MIGRAINE [None]
  - POLYCYSTIC OVARIES [None]
